FAERS Safety Report 9842299 (Version 2)
Quarter: 2014Q1

REPORT INFORMATION
  Report Type: Report from Study
  Country: CA (occurrence: CA)
  Receive Date: 20140124
  Receipt Date: 20140124
  Transmission Date: 20141002
  Serious: Yes (Other)
  Sender: FDA-Public Use
  Company Number: CA-ABBVIE-13P-028-1070106-00

PATIENT
  Sex: Female
  Weight: 43.58 kg

DRUGS (3)
  1. HUMIRA [Suspect]
     Indication: CROHN^S DISEASE
     Route: 058
     Dates: start: 20110906, end: 2012
  2. HUMIRA [Suspect]
     Route: 058
     Dates: start: 201207
  3. CHOLESTYRAMINE [Concomitant]
     Indication: CROHN^S DISEASE
     Dosage: OD OR BID
     Route: 048
     Dates: start: 2001

REACTIONS (2)
  - Anal fistula [Recovering/Resolving]
  - Anal abscess [Unknown]
